FAERS Safety Report 8069796-4 (Version None)
Quarter: 2012Q1

REPORT INFORMATION
  Report Type: 
  Country: None (occurrence: None)
  Receive Date: 20120125
  Receipt Date: 20120118
  Transmission Date: 20120608
  Serious: Yes (Death, Hospitalization, Other)
  Sender: FDA-Public Use
  Company Number: US-PFIZER INC-2011185439

PATIENT
  Sex: Female
  Weight: 80.7 kg

DRUGS (10)
  1. LISINOPRIL [Concomitant]
     Dosage: UNK
     Dates: end: 20110701
  2. SIMVASTATIN [Concomitant]
     Dosage: UNK
     Dates: end: 20110701
  3. LYRICA [Suspect]
     Indication: POLYMYALGIA RHEUMATICA
     Dosage: 150 MG IN THE MORNING AND 300 MG AT NIGHT
     Route: 048
  4. ATENOLOL [Concomitant]
     Dosage: UNK
     Dates: end: 20110701
  5. ACETYLSALICYLIC ACID [Concomitant]
     Dosage: UNK
     Dates: end: 20110701
  6. PREDNISOLONE [Concomitant]
     Dosage: UNK
  7. PLAVIX [Concomitant]
     Dosage: UNK
     Dates: end: 20110701
  8. LYRICA [Suspect]
     Dosage: UNK
  9. ISOSORBIDE [Concomitant]
     Dosage: UNK
     Dates: end: 20110701
  10. PROZAC [Concomitant]
     Indication: DEPRESSION
     Dosage: UNK

REACTIONS (3)
  - DEATH [None]
  - EXPIRED DRUG ADMINISTERED [None]
  - MYOCARDIAL INFARCTION [None]
